FAERS Safety Report 4968295-3 (Version None)
Quarter: 2006Q2

REPORT INFORMATION
  Report Type: 
  Country: None (occurrence: None)
  Receive Date: 20060405
  Receipt Date: 20060320
  Transmission Date: 20061013
  Serious: No
  Sender: FDA-Public Use
  Company Number: 230003M06DNK

PATIENT
  Age: 42 Year
  Weight: 70 kg

DRUGS (5)
  1. REBIF [Suspect]
     Dosage: 22 MCG, 3 IN 1 WEEKS
     Dates: start: 19990401
  2. BENDROFLUMETHIAZIDE [Concomitant]
  3. TOLTERODINE TARTRATE [Concomitant]
  4. POTASSIUM CHLORIDE [Concomitant]
  5. PHENOXYMETHYLPENICILLIN [Concomitant]

REACTIONS (4)
  - ARTHRALGIA [None]
  - NODULE [None]
  - RASH ERYTHEMATOUS [None]
  - TENDERNESS [None]
